FAERS Safety Report 11504644 (Version 1)
Quarter: 2015Q3

REPORT INFORMATION
  Report Type: Spontaneous
  Country: US (occurrence: US)
  Receive Date: 20150915
  Receipt Date: 20150915
  Transmission Date: 20151125
  Serious: No
  Sender: FDA-Public Use
  Company Number: US-ROCHE-801724

PATIENT
  Sex: Male

DRUGS (4)
  1. WARFARIN [Concomitant]
     Active Substance: WARFARIN
     Dosage: 5MG DAILY 6 DAYS A WEEK AND 2.5 MG ON THURSDAYS
     Route: 065
  2. RIBAVIRIN. [Suspect]
     Active Substance: RIBAVIRIN
     Indication: CHRONIC HEPATITIS C
     Dosage: 1000 MG/DAY DIVIDED DOSES ORALLY 600/400
     Route: 048
  3. PEGASYS [Suspect]
     Active Substance: PEGINTERFERON ALFA-2A
     Indication: CHRONIC HEPATITIS C
     Dosage: PRE-FILLED SYRINGE
     Route: 058
  4. TELAPREVIR [Suspect]
     Active Substance: TELAPREVIR
     Indication: CHRONIC HEPATITIS C
     Dosage: 750 MG 3 TIMES A DAY FOR 48 WEEK LENGTH OF THERAPY
     Route: 065

REACTIONS (2)
  - Depression [Unknown]
  - Platelet count decreased [Unknown]
